FAERS Safety Report 6362066-1 (Version None)
Quarter: 2009Q3

REPORT INFORMATION
  Report Type: 
  Country: None (occurrence: None)
  Receive Date: 20090918
  Receipt Date: 20090910
  Transmission Date: 20100115
  Serious: Yes (Death)
  Sender: FDA-Public Use
  Company Number: PHHO2009AT10641

PATIENT
  Sex: Female
  Weight: 63 kg

DRUGS (13)
  1. TASIGNA [Suspect]
     Indication: GASTROINTESTINAL STROMAL TUMOUR
     Dosage: 800 MG
     Route: 048
     Dates: start: 20090730, end: 20090814
  2. TASIGNA [Suspect]
     Dosage: NO TREATMENT
     Route: 048
     Dates: start: 20090815, end: 20090816
  3. TASIGNA [Suspect]
     Dosage: 400 MG
     Dates: start: 20090817, end: 20090827
  4. TASIGNA [Suspect]
     Dosage: UNK
     Dates: start: 20090827
  5. RAMIPRIL [Concomitant]
     Indication: HYPERTENSION
     Dosage: UNK
  6. TEBOFORTAN [Concomitant]
     Dosage: UNK
  7. MAGNESIUM [Concomitant]
     Indication: CONVULSION
  8. MEXALEN [Concomitant]
     Indication: PAIN
  9. PROPOFOL [Concomitant]
  10. DORMICUM [Concomitant]
  11. BUSCOPAN [Concomitant]
  12. THYREX [Concomitant]
  13. KOMBI-KALZ (CALCIUM CARBONATE/COLECALCIFEROL) [Concomitant]
     Indication: OSTEOPOROSIS

REACTIONS (2)
  - CARDIAC ARREST [None]
  - HYPERBILIRUBINAEMIA [None]
